FAERS Safety Report 5118395-2 (Version None)
Quarter: 2006Q4

REPORT INFORMATION
  Report Type: 
  Country: None (occurrence: None)
  Receive Date: 20061002
  Receipt Date: 20060920
  Transmission Date: 20070319
  Serious: Yes (Other)
  Sender: FDA-Public Use
  Company Number: FR-AMGEN-UK194258

PATIENT
  Age: 72 Year
  Sex: Male

DRUGS (2)
  1. ARANESP [Suspect]
     Indication: RENAL FAILURE CHRONIC
     Route: 042
     Dates: start: 20060801, end: 20060801
  2. NEORECORMON [Concomitant]

REACTIONS (2)
  - MALAISE [None]
  - VERTIGO [None]
